FAERS Safety Report 6372496-X (Version None)
Quarter: 2009Q3

REPORT INFORMATION
  Report Type: 
  Country: None (occurrence: None)
  Receive Date: 20090924
  Receipt Date: 20080821
  Transmission Date: 20100115
  Serious: Yes (Other)
  Sender: FDA-Public Use
  Company Number: US-ASTRAZENECA-2008UW17282

PATIENT
  Age: 50 Year
  Sex: Female

DRUGS (4)
  1. SEROQUEL [Suspect]
  2. LAMICTAL [Concomitant]
  3. PROVIGIL [Concomitant]
  4. CYMBALTA [Concomitant]

REACTIONS (1)
  - CATARACT [None]
